FAERS Safety Report 5675601-3 (Version None)
Quarter: 2008Q1

REPORT INFORMATION
  Report Type: 
  Country: None (occurrence: None)
  Receive Date: 20080321
  Receipt Date: 20080314
  Transmission Date: 20080703
  Serious: Yes (Hospitalization, Other)
  Sender: FDA-Public Use
  Company Number: CH-JNJFOC-20080303315

PATIENT
  Sex: Female
  Weight: 63 kg

DRUGS (10)
  1. RISPERDAL CONSTA [Suspect]
     Indication: DRUG USE FOR UNKNOWN INDICATION
  2. EFFEXOR [Concomitant]
     Route: 048
  3. EFFEXOR [Concomitant]
     Route: 048
  4. KLACID [Concomitant]
     Route: 048
  5. ASPIRIN [Concomitant]
     Route: 048
  6. DAFALGAN [Concomitant]
     Route: 048
  7. TENORMIN [Concomitant]
     Route: 048
  8. CALCIMAGON D3 [Concomitant]
     Route: 048
  9. AUGMENTIN '125' [Concomitant]
     Route: 042
  10. CEFUROXIME AXETIL [Concomitant]
     Route: 048

REACTIONS (7)
  - BRONCHOPNEUMONIA [None]
  - BUNDLE BRANCH BLOCK RIGHT [None]
  - EXTRAPYRAMIDAL DISORDER [None]
  - FALL [None]
  - SUPRAVENTRICULAR TACHYCARDIA [None]
  - VENTRICULAR EXTRASYSTOLES [None]
  - VERTIGO [None]
